FAERS Safety Report 7725518-5 (Version None)
Quarter: 2011Q3

REPORT INFORMATION
  Report Type: 
  Country: None (occurrence: None)
  Receive Date: 20110902
  Receipt Date: 20110519
  Transmission Date: 20111222
  Serious: No
  Sender: FDA-Public Use
  Company Number: US-BRISTOL-MYERS SQUIBB COMPANY-15731821

PATIENT
  Age: 30 Year
  Sex: Female

DRUGS (1)
  1. KOMBIGLYZE XR [Suspect]
     Indication: DIABETES MELLITUS
     Dosage: 1DF:5/1000MG  RECEIVED FOR FEW WEEKS THEN PRESCRIPTION DT WAS 22APR11
     Route: 048
     Dates: start: 20110401

REACTIONS (1)
  - MALAISE [None]
